FAERS Safety Report 17022195 (Version 1)
Quarter: 2019Q4

REPORT INFORMATION
  Report Type: Spontaneous
  Country: US (occurrence: US)
  Receive Date: 20191112
  Receipt Date: 20191112
  Transmission Date: 20200122
  Serious: Yes (Other)
  Sender: FDA-Public Use
  Company Number: US-AMGEN-USASP2019183783

PATIENT
  Age: 74 Year
  Sex: Female

DRUGS (4)
  1. MYCOPHENOLATE [Concomitant]
     Active Substance: MYCOPHENOLIC ACID
  2. PREDNISONE. [Concomitant]
     Active Substance: PREDNISONE
  3. TACROLIMUS. [Concomitant]
     Active Substance: TACROLIMUS
  4. DARBEPOETIN ALFA [Suspect]
     Active Substance: DARBEPOETIN ALFA
     Indication: PRODUCT USED FOR UNKNOWN INDICATION
     Dosage: UNK
     Route: 065

REACTIONS (2)
  - Extramedullary haemopoiesis [Unknown]
  - Metastatic neoplasm [Unknown]
